FAERS Safety Report 4699270-4 (Version None)
Quarter: 2005Q2

REPORT INFORMATION
  Report Type: 
  Country: None (occurrence: None)
  Receive Date: 20050624
  Receipt Date: 20050314
  Transmission Date: 20051028
  Serious: Yes (Other)
  Sender: FDA-Public Use
  Company Number: US-MERCK-0503USA02876

PATIENT
  Age: 65 Year
  Sex: Male
  Weight: 107 kg

DRUGS (5)
  1. VIOXX [Suspect]
     Indication: ARTHRITIS
     Route: 048
     Dates: start: 20020401, end: 20031201
  2. LISINOPRIL [Concomitant]
     Route: 048
     Dates: start: 20020101
  3. ASPIRIN [Concomitant]
     Route: 048
     Dates: start: 20000101
  4. TYLENOL [Concomitant]
     Route: 048
     Dates: start: 20020401, end: 20031201
  5. PLAVIX [Concomitant]
     Route: 048
     Dates: start: 20020301

REACTIONS (5)
  - BLOOD CHOLESTEROL INCREASED [None]
  - CEREBROVASCULAR ACCIDENT [None]
  - CHEST PAIN [None]
  - EYE DISORDER [None]
  - PAIN [None]
